FAERS Safety Report 9744557 (Version 1)
Quarter: 2013Q4

REPORT INFORMATION
  Report Type: Spontaneous
  Country: IT (occurrence: IT)
  Receive Date: 20131210
  Receipt Date: 20131210
  Transmission Date: 20140711
  Serious: Yes (Hospitalization)
  Sender: FDA-Public Use
  Company Number: IT-TEVA-447986ISR

PATIENT
  Age: 59 Year
  Sex: Female

DRUGS (3)
  1. LEVOFLOXACIN [Suspect]
     Indication: NECROTISING FASCIITIS
     Route: 048
     Dates: start: 20131022, end: 20131026
  2. RIFADIN - 450 MG COMPRESSE RIVESTITE - SANOFI-AVENTIS S.P.A. [Suspect]
     Indication: NECROTISING FASCIITIS
     Dates: start: 20131022, end: 20131026
  3. VANCOMYCIN HYDROCHLORIDE [Concomitant]
     Indication: PRODUCT USED FOR UNKNOWN INDICATION
     Dates: start: 20131012, end: 20131026

REACTIONS (1)
  - Blood creatinine increased [Recovering/Resolving]
